FAERS Safety Report 25764751 (Version 1)
Quarter: 2025Q3

REPORT INFORMATION
  Report Type: Spontaneous
  Country: US (occurrence: US)
  Receive Date: 20250905
  Receipt Date: 20250905
  Transmission Date: 20251020
  Serious: No
  Sender: ULTRAGENYX PHARMACEUTICAL
  Company Number: US-ULTRAGENYX PHARMACEUTICAL INC.-US-UGNX-22-00515

PATIENT
  Sex: Male

DRUGS (2)
  1. DOJOLVI [Suspect]
     Active Substance: TRIHEPTANOIN
     Indication: Pyruvate carboxylase deficiency
     Dosage: 12 MILLILITER, Q8H
     Route: 048
     Dates: start: 20210624
  2. DOJOLVI [Suspect]
     Active Substance: TRIHEPTANOIN
     Dosage: 12 MILLILITER, BID
     Route: 048

REACTIONS (3)
  - Intentional underdose [Unknown]
  - Intentional dose omission [Unknown]
  - Off label use [Unknown]
